FAERS Safety Report 6314804-1 (Version None)
Quarter: 2009Q3

REPORT INFORMATION
  Report Type: 
  Country: None (occurrence: None)
  Receive Date: 20090817
  Receipt Date: 20090803
  Transmission Date: 20100115
  Serious: Yes (Hospitalization)
  Sender: FDA-Public Use
  Company Number: 001260

PATIENT
  Sex: Female
  Weight: 66 kg

DRUGS (5)
  1. NEUPRO [Suspect]
     Indication: PARKINSON'S DISEASE
     Dosage: (2 MG QD TRANSDERMAL)
     Route: 062
     Dates: start: 20090708
  2. SELEGILIN [Concomitant]
  3. VERAPAMIL [Concomitant]
  4. TYROSINE [Concomitant]
  5. L-THYROXINE /00068001/ [Concomitant]

REACTIONS (6)
  - CONTUSION [None]
  - HYPERHIDROSIS [None]
  - NAUSEA [None]
  - SYNCOPE [None]
  - TACHYCARDIA [None]
  - VOMITING [None]
